FAERS Safety Report 10333467 (Version 1)
Quarter: 2014Q3

REPORT INFORMATION
  Report Type: Spontaneous
  Country: US (occurrence: US)
  Receive Date: 20140722
  Receipt Date: 20140722
  Transmission Date: 20150326
  Serious: No
  Sender: FDA-Public Use
  Company Number: US-SA-2014SA039947

PATIENT
  Age: 80 Year
  Sex: Female

DRUGS (1)
  1. AMBIEN [Suspect]
     Active Substance: ZOLPIDEM TARTRATE
     Dosage: 5 MG AT BEDTIME AND THEN 5 MG  WHEN SHE WAKES UP
     Route: 065

REACTIONS (3)
  - Circadian rhythm sleep disorder [Unknown]
  - Drug ineffective [Unknown]
  - Wrong technique in drug usage process [Unknown]
